FAERS Safety Report 10331906 (Version 1)
Quarter: 2014Q3

REPORT INFORMATION
  Report Type: Spontaneous
  Country: JP (occurrence: JP)
  Receive Date: 20140722
  Receipt Date: 20140722
  Transmission Date: 20150326
  Serious: Yes (Hospitalization, Other)
  Sender: FDA-Public Use
  Company Number: JP-BAYER-2014-103821

PATIENT
  Age: 71 Year
  Sex: Male

DRUGS (7)
  1. WARFARIN [Suspect]
     Active Substance: WARFARIN
     Indication: ATRIAL FIBRILLATION
     Dosage: DAILY DOSE 3 MG
     Route: 048
     Dates: end: 2014
  2. NEXAVAR [Suspect]
     Active Substance: SORAFENIB
     Indication: HEPATOCELLULAR CARCINOMA
     Dosage: DAILY DOSE 600 MG
     Route: 048
     Dates: start: 2014, end: 2014
  3. WARFARIN [Suspect]
     Active Substance: WARFARIN
     Indication: ATRIAL FIBRILLATION
     Dosage: DAILY DOSE 2 MG
     Route: 048
     Dates: start: 2014, end: 2014
  4. NEXAVAR [Suspect]
     Active Substance: SORAFENIB
     Indication: HEPATOCELLULAR CARCINOMA
     Dosage: DAILY DOSE 800 MG
     Route: 048
     Dates: start: 201401, end: 2014
  5. NEXAVAR [Suspect]
     Active Substance: SORAFENIB
     Indication: HEPATOCELLULAR CARCINOMA
     Dosage: DAILY DOSE 400 MG
     Route: 048
     Dates: start: 2014, end: 2014
  6. ASPIRIN. [Concomitant]
     Active Substance: ASPIRIN
     Indication: ATRIAL FIBRILLATION
     Dosage: LOW DOSE
     Route: 048
     Dates: end: 2014
  7. WARFARIN [Suspect]
     Active Substance: WARFARIN
     Indication: ATRIAL FIBRILLATION
     Dosage: DAILY DOSE 1 MG
     Route: 048
     Dates: start: 2014, end: 2014

REACTIONS (6)
  - Hepatocellular carcinoma [None]
  - Drug interaction [None]
  - Epistaxis [Recovered/Resolved]
  - International normalised ratio increased [None]
  - Tongue haemorrhage [Recovered/Resolved]
  - Gingival bleeding [Recovered/Resolved]
